FAERS Safety Report 19104488 (Version 1)
Quarter: 2021Q2

REPORT INFORMATION
  Report Type: Spontaneous
  Country: BR (occurrence: BR)
  Receive Date: 20210407
  Receipt Date: 20210407
  Transmission Date: 20210717
  Serious: Yes (Death, Hospitalization)
  Sender: FDA-Public Use
  Company Number: BR-BAYER-2021-117602

PATIENT
  Age: 71 Year
  Sex: Male

DRUGS (3)
  1. STIVARGA [Suspect]
     Active Substance: REGORAFENIB
     Indication: ADENOCARCINOMA OF COLON
     Dosage: DOSE ESCALATION TO 160 MG FROM D1 TO D21, EVERY 28 DAYS
     Route: 048
     Dates: start: 201902, end: 202001
  2. STIVARGA [Suspect]
     Active Substance: REGORAFENIB
     Indication: METASTASES TO PERITONEUM
  3. TRAMADOL. [Concomitant]
     Active Substance: TRAMADOL
     Indication: ABDOMINAL PAIN
     Dosage: 1000 MG, QID
     Route: 048

REACTIONS (4)
  - Off label use [None]
  - Adenocarcinoma of colon [Fatal]
  - Fatigue [None]
  - Intestinal obstruction [None]

NARRATIVE: CASE EVENT DATE: 201902
